FAERS Safety Report 12987027 (Version 2)
Quarter: 2017Q2

REPORT INFORMATION
  Report Type: Report from Study
  Country: ES (occurrence: ES)
  Receive Date: 20161130
  Receipt Date: 20170412
  Transmission Date: 20170830
  Serious: Yes (Other)
  Sender: FDA-Public Use
  Company Number: ES-JNJFOC-20161125739

PATIENT
  Age: 71 Year
  Sex: Female

DRUGS (3)
  1. INVOKANA [Suspect]
     Active Substance: CANAGLIFLOZIN
     Indication: TYPE 2 DIABETES MELLITUS
     Route: 065
  2. METFORMIN [Concomitant]
     Active Substance: METFORMIN HYDROCHLORIDE
     Route: 065
  3. INSULIN [Concomitant]
     Active Substance: INSULIN NOS
     Dosage: INSULIN DOSE 106, BASAL DOSE 40 AND FAST DOSE WAS 66 (UNITS UNSPECIFIED). NUMBER OF INJECTION 4
     Route: 065

REACTIONS (1)
  - Chronic kidney disease [Recovered/Resolved]
